FAERS Safety Report 7376356-7 (Version None)
Quarter: 2011Q1

REPORT INFORMATION
  Report Type: 
  Country: None (occurrence: None)
  Receive Date: 20110325
  Receipt Date: 20110322
  Transmission Date: 20110831
  Serious: Yes (Hospitalization, Other)
  Sender: FDA-Public Use
  Company Number: US-PFIZER INC-2011027432

PATIENT
  Sex: Male
  Weight: 97.506 kg

DRUGS (9)
  1. ZETIA [Concomitant]
     Dosage: UNK
  2. SIMVASTATIN [Concomitant]
     Dosage: UNK
  3. DILANTIN [Suspect]
     Indication: CONVULSION
     Dosage: 100 MG, 3X/DAY
     Route: 048
     Dates: end: 20110201
  4. DILANTIN [Suspect]
     Indication: DIABETIC NEUROPATHY
  5. TRICOR [Concomitant]
  6. LYRICA [Suspect]
     Indication: CONVULSION
     Dosage: 100 MG QAM, 150 MG QHS
     Route: 048
     Dates: start: 20100713, end: 20110201
  7. LEVOTHYROXINE [Concomitant]
  8. LYRICA [Suspect]
     Indication: DIABETIC NEUROPATHY
  9. PIRETANIDE SODIUM [Concomitant]

REACTIONS (6)
  - DIABETES MELLITUS [None]
  - UNRESPONSIVE TO STIMULI [None]
  - DEPRESSION [None]
  - AGGRESSION [None]
  - DRUG INTOLERANCE [None]
  - HYPERTENSION [None]
